FAERS Safety Report 10482365 (Version 3)
Quarter: 2014Q4

REPORT INFORMATION
  Report Type: Spontaneous
  Country: US (occurrence: US)
  Receive Date: 20140929
  Receipt Date: 20141027
  Transmission Date: 20150528
  Serious: Yes (Other)
  Sender: FDA-Public Use
  Company Number: US-BAYER-2014-142659

PATIENT
  Age: 32 Year
  Sex: Female

DRUGS (2)
  1. MIRENA [Suspect]
     Active Substance: LEVONORGESTREL
     Indication: MENORRHAGIA
  2. MIRENA [Suspect]
     Active Substance: LEVONORGESTREL
     Indication: CONTRACEPTION
     Dosage: 20 MCG/24HR, CONT
     Route: 015
     Dates: start: 20131028, end: 20131125

REACTIONS (5)
  - Pregnancy with contraceptive device [None]
  - Genital haemorrhage [None]
  - Drug ineffective [None]
  - Device expulsion [None]
  - Abortion spontaneous [None]

NARRATIVE: CASE EVENT DATE: 20131125
